FAERS Safety Report 4953007-X (Version None)
Quarter: 2006Q1

REPORT INFORMATION
  Report Type: 
  Country: None (occurrence: None)
  Receive Date: 20060324
  Receipt Date: 20060321
  Transmission Date: 20060701
  Serious: Yes (Other)
  Sender: FDA-Public Use
  Company Number: US-GLAXOSMITHKLINE-A0598717A

PATIENT
  Sex: Female

DRUGS (1)
  1. PAXIL CR [Suspect]
     Route: 048
     Dates: start: 20021101, end: 20050501

REACTIONS (13)
  - ABNORMAL BEHAVIOUR [None]
  - DISTRACTIBILITY [None]
  - DISTURBANCE IN ATTENTION [None]
  - ELEVATED MOOD [None]
  - IMPULSIVE BEHAVIOUR [None]
  - INSOMNIA [None]
  - IRRITABILITY [None]
  - LOGORRHOEA [None]
  - MANIA [None]
  - PROMISCUITY [None]
  - PSYCHOMOTOR HYPERACTIVITY [None]
  - SELF ESTEEM INFLATED [None]
  - THINKING ABNORMAL [None]
